FAERS Safety Report 6512054-7 (Version None)
Quarter: 2009Q4

REPORT INFORMATION
  Report Type: 
  Country: None (occurrence: None)
  Receive Date: 20091222
  Receipt Date: 20090522
  Transmission Date: 20100525
  Serious: No
  Sender: FDA-Public Use
  Company Number: US-ASTRAZENECA-2009UW13200

PATIENT
  Sex: Female
  Weight: 82.6 kg

DRUGS (5)
  1. CRESTOR [Suspect]
     Route: 048
  2. NIMENDA [Concomitant]
  3. GRAZADIM [Concomitant]
  4. AVAPRO [Concomitant]
  5. ZOLOFT [Concomitant]

REACTIONS (1)
  - PHOTOSENSITIVITY REACTION [None]
